FAERS Safety Report 18408697 (Version 6)
Quarter: 2021Q1

REPORT INFORMATION
  Report Type: Other
  Country: CA (occurrence: CA)
  Receive Date: 20201021
  Receipt Date: 20210303
  Transmission Date: 20210419
  Serious: Yes (Other)
  Sender: FDA-Public Use
  Company Number: CA-ROCHE-2689523

PATIENT
  Age: 26 Year
  Sex: Female

DRUGS (7)
  1. ADVIL LIQUI?GELS [Concomitant]
     Active Substance: IBUPROFEN
  2. BACLOFEN. [Concomitant]
     Active Substance: BACLOFEN
  3. OCREVUS [Suspect]
     Active Substance: OCRELIZUMAB
     Route: 042
  4. OCREVUS [Suspect]
     Active Substance: OCRELIZUMAB
     Indication: RELAPSING-REMITTING MULTIPLE SCLEROSIS
     Dosage: 600MG IN 250CC NS, 300MG IN 125CC NS: DAY 0, 14 THEN 600 MG ONCE EVERY 6 MONTHS
     Route: 042
     Dates: start: 20201001
  5. GABAPENTIN. [Concomitant]
     Active Substance: GABAPENTIN
  6. EFFEXOR [Concomitant]
     Active Substance: VENLAFAXINE HYDROCHLORIDE
  7. DIAZEPAM. [Concomitant]
     Active Substance: DIAZEPAM

REACTIONS (13)
  - Nasopharyngitis [Not Recovered/Not Resolved]
  - Cough [Recovered/Resolved]
  - Muscle mass [Not Recovered/Not Resolved]
  - Infusion related reaction [Recovered/Resolved]
  - Incorrect dose administered [Unknown]
  - Abdominal discomfort [Unknown]
  - Medication error [Unknown]
  - Oral herpes [Recovering/Resolving]
  - Nasal congestion [Not Recovered/Not Resolved]
  - Oropharyngeal pain [Not Recovered/Not Resolved]
  - Illness [Not Recovered/Not Resolved]
  - Urinary tract infection [Not Recovered/Not Resolved]
  - Pyrexia [Not Recovered/Not Resolved]

NARRATIVE: CASE EVENT DATE: 20201001
